FAERS Safety Report 17221876 (Version 4)
Quarter: 2020Q1

REPORT INFORMATION
  Report Type: Report from Study
  Country: DE (occurrence: DE)
  Receive Date: 20200101
  Receipt Date: 20200311
  Transmission Date: 20200409
  Serious: No
  Sender: FDA-Public Use
  Company Number: DE-ROCHE-2239412

PATIENT
  Age: 53 Year
  Sex: Female

DRUGS (6)
  1. PANTOPRAZOL [PANTOPRAZOLE] [Concomitant]
     Active Substance: PANTOPRAZOLE
     Dosage: 0-0-1
     Route: 065
  2. OCREVUS [Suspect]
     Active Substance: OCRELIZUMAB
     Route: 042
  3. OCREVUS [Suspect]
     Active Substance: OCRELIZUMAB
     Indication: SECONDARY PROGRESSIVE MULTIPLE SCLEROSIS
     Route: 042
     Dates: start: 20181217
  4. BISOPROLOL [Concomitant]
     Active Substance: BISOPROLOL
     Dosage: 1-0-0
     Route: 065
  5. SHINGRIX [Concomitant]
     Active Substance: RECOMBINANT VARICELLA ZOSTER VIRUS (VZV) GLYCOPROTEIN E
     Indication: IMMUNISATION
     Route: 065
     Dates: start: 20200107
  6. INTERFERON [Concomitant]
     Active Substance: INTERFERON

REACTIONS (17)
  - Feeling cold [Recovered/Resolved]
  - Ingrowing nail [Not Recovered/Not Resolved]
  - Nail disorder [Recovered/Resolved]
  - Off label use [Unknown]
  - Pruritus [Recovered/Resolved]
  - Mobility decreased [Recovered/Resolved]
  - Pyrexia [Recovered/Resolved]
  - Headache [Recovered/Resolved]
  - Peripheral swelling [Recovered/Resolved]
  - Exercise tolerance decreased [Recovered/Resolved]
  - Intentional product use issue [Unknown]
  - Pain in extremity [Recovered/Resolved]
  - Feeling hot [Recovered/Resolved]
  - Erythema [Recovered/Resolved]
  - Inappropriate schedule of product administration [Unknown]
  - Malaise [Recovered/Resolved]
  - Varicella virus test positive [Recovered/Resolved]

NARRATIVE: CASE EVENT DATE: 20181217
